FAERS Safety Report 14964852 (Version 1)
Quarter: 2018Q2

REPORT INFORMATION
  Report Type: Spontaneous
  Country: US (occurrence: US)
  Receive Date: 20180601
  Receipt Date: 20180601
  Transmission Date: 20180711
  Serious: Yes (Other)
  Sender: FDA-Public Use
  Company Number: US-TEVA-2018-US-898529

PATIENT
  Sex: Female

DRUGS (1)
  1. ALENDRONATE SODIUM. [Suspect]
     Active Substance: ALENDRONATE SODIUM
     Indication: OSTEOPOROSIS PROPHYLAXIS
     Dosage: 5 MILLIGRAM DAILY; DOSE STRENGTH:  70
     Dates: start: 201206

REACTIONS (3)
  - Breast cancer [Unknown]
  - Hip arthroplasty [Unknown]
  - Pain in extremity [Unknown]

NARRATIVE: CASE EVENT DATE: 2012
